FAERS Safety Report 7503347-5 (Version None)
Quarter: 2011Q2

REPORT INFORMATION
  Report Type: 
  Country: None (occurrence: None)
  Receive Date: 20110525
  Receipt Date: 20110512
  Transmission Date: 20111010
  Serious: Yes (Hospitalization)
  Sender: FDA-Public Use
  Company Number: A0750990A

PATIENT
  Age: 65 Year
  Sex: Female
  Weight: 98.2 kg

DRUGS (17)
  1. ZOCOR [Concomitant]
  2. NEURONTIN [Concomitant]
  3. METFORMIN HCL [Concomitant]
     Dates: start: 20030101, end: 20060101
  4. AVANDIA [Suspect]
     Dosage: 8MG PER DAY
     Route: 048
     Dates: start: 20030801, end: 20070701
  5. LOPRESSOR [Concomitant]
  6. ALTACE [Concomitant]
  7. PLAVIX [Concomitant]
  8. MICRONASE [Concomitant]
  9. GLYBURIDE [Concomitant]
  10. ASPIRIN [Concomitant]
  11. NEURONTIN [Concomitant]
  12. DARVOCET [Concomitant]
  13. CELEBREX [Concomitant]
  14. BYETTA [Concomitant]
  15. DIABETA [Concomitant]
     Dates: start: 19900101, end: 20060101
  16. TRICOR [Concomitant]
     Dates: end: 20061030
  17. GLUCOPHAGE [Concomitant]

REACTIONS (7)
  - MYOCARDIAL INFARCTION [None]
  - HEART INJURY [None]
  - CORONARY ARTERY DISEASE [None]
  - CARDIAC FAILURE CONGESTIVE [None]
  - OBESITY [None]
  - BLOOD CHOLESTEROL INCREASED [None]
  - ARTERIOSCLEROSIS [None]
